FAERS Safety Report 17571088 (Version 1)
Quarter: 2020Q1

REPORT INFORMATION
  Report Type: Spontaneous
  Country: DE (occurrence: DE)
  Receive Date: 20200323
  Receipt Date: 20200323
  Transmission Date: 20200409
  Serious: Yes (Other)
  Sender: FDA-Public Use
  Company Number: NVSC2020DE081525

PATIENT
  Age: 70 Year
  Sex: Female

DRUGS (2)
  1. AMLODIPIN [Suspect]
     Active Substance: AMLODIPINE BESYLATE
     Indication: BLOOD PRESSURE MEASUREMENT
     Dosage: 5 MG, UNKNOWN
     Route: 065
  2. RAMIPRIL - 1 A PHARMA 5 MG TABLETTEN [Suspect]
     Active Substance: RAMIPRIL
     Indication: BLOOD PRESSURE MEASUREMENT
     Dosage: 5 MG, UNKNOWN
     Route: 065

REACTIONS (3)
  - Swelling face [Unknown]
  - Arrhythmia [Unknown]
  - Laryngeal oedema [Unknown]
